FAERS Safety Report 17572105 (Version 1)
Quarter: 2020Q1

REPORT INFORMATION
  Report Type: Spontaneous
  Country: US (occurrence: US)
  Receive Date: 20200322
  Receipt Date: 20200322
  Transmission Date: 20200409
  Serious: Yes (Hospitalization)
  Sender: FDA-Public Use
  Company Number: None

PATIENT
  Age: 59 Year
  Sex: Male

DRUGS (8)
  1. PREDNISONE. [Concomitant]
     Active Substance: PREDNISONE
  2. MYCOPHENOLATE [Suspect]
     Active Substance: MYCOPHENOLIC ACID
  3. SODIUM BICAR [Concomitant]
  4. TACROLIMUS. [Suspect]
     Active Substance: TACROLIMUS
     Indication: RENAL TRANSPLANT
     Route: 048
     Dates: start: 20200228
  5. MAGNESIUM-OX [Concomitant]
  6. VITAMIN D [Concomitant]
     Active Substance: VITAMIN D NOS
  7. ATORVASTATIN [Concomitant]
     Active Substance: ATORVASTATIN
  8. EPOGEN [Concomitant]
     Active Substance: ERYTHROPOIETIN

REACTIONS (3)
  - Peripheral swelling [None]
  - Thermal burn [None]
  - Contusion [None]

NARRATIVE: CASE EVENT DATE: 20200302
